FAERS Safety Report 9649398 (Version 1)
Quarter: 2013Q4

REPORT INFORMATION
  Report Type: Spontaneous
  Country: US (occurrence: None)
  Receive Date: 20131018
  Receipt Date: 20131018
  Transmission Date: 20140711
  Serious: No
  Sender: FDA-Public Use
  Company Number: AEGR000079

PATIENT
  Age: 72 Year
  Sex: Female
  Weight: 60.3 kg

DRUGS (11)
  1. JUXTAPID (LOMITAPIDE) CAPSULE, 5MG [Suspect]
     Indication: BLOOD CHOLESTEROL INCREASED
     Route: 048
     Dates: start: 201302, end: 2013
  2. CLONIDINE (CLONIDINE) [Concomitant]
  3. RYTHMOL (PROPAFENONE HYDROCHLORIDE) [Concomitant]
  4. CLOPIDOGREL (CLOPIDOGREL BISULFATE) [Concomitant]
  5. LOSARTAN (LOSARTAN POTASSIUM) [Concomitant]
  6. OMEPRAZOLE (OMEPRAZOLE) [Concomitant]
  7. CHLORTHALIDONE (CHLORTALIDONE) [Concomitant]
  8. VITAMIN E (TOCOPHERYL ACETATE) O [Concomitant]
  9. OMEGA 3 6 9 (OMEGA 9 FATTY ACIDS, OMEGA-3 FATTY ACIDS, OMEGA-6 FATTY ACIDS) [Concomitant]
  10. FENOFIBRATE (FENOFIBRATE) [Concomitant]
  11. LEVOTHYROXINE SODIUM (LEVOTHYROXINE SODIUM) [Concomitant]

REACTIONS (1)
  - Diarrhoea [None]
